FAERS Safety Report 14701884 (Version 1)
Quarter: 2018Q1

REPORT INFORMATION
  Report Type: Spontaneous
  Country: FR (occurrence: FR)
  Receive Date: 20180331
  Receipt Date: 20180331
  Transmission Date: 20180509
  Serious: Yes (Hospitalization)
  Sender: FDA-Public Use
  Company Number: FR-AUROBINDO-AUR-APL-2018-017123

PATIENT
  Age: 60 Year
  Sex: Female

DRUGS (6)
  1. ZOLPIDEM [Suspect]
     Active Substance: ZOLPIDEM\ZOLPIDEM TARTRATE
     Indication: INSOMNIA
     Dosage: NON RENSEIGN?E ()
     Route: 048
     Dates: start: 20180224, end: 20180308
  2. ADVAGRAF [Concomitant]
     Active Substance: TACROLIMUS
     Dosage: ()
     Route: 048
  3. PARACETAMOL [Suspect]
     Active Substance: ACETAMINOPHEN
     Indication: PAIN
     Dosage: NON RENSEIGN?E ()
     Route: 048
     Dates: start: 20180219, end: 20180308
  4. PANTOPRAZOLE [Suspect]
     Active Substance: PANTOPRAZOLE
     Indication: PROPHYLAXIS AGAINST GASTROINTESTINAL ULCER
     Dosage: NON RENSEIGN?E ()
     Route: 048
     Dates: start: 20180223, end: 20180308
  5. CERTICAN [Suspect]
     Active Substance: EVEROLIMUS
     Indication: IMMUNOSUPPRESSION
     Dosage: NON RENSEIGN?E ()
     Route: 048
     Dates: start: 20180219
  6. ADVAGRAF [Concomitant]
     Active Substance: TACROLIMUS
     Dosage: ()
     Route: 048

REACTIONS (1)
  - Thrombocytopenia [Recovering/Resolving]

NARRATIVE: CASE EVENT DATE: 20180306
